FAERS Safety Report 10501127 (Version 1)
Quarter: 2014Q4

REPORT INFORMATION
  Report Type: Spontaneous
  Country: US (occurrence: None)
  Receive Date: 20141006
  Receipt Date: 20141006
  Transmission Date: 20150528
  Serious: Yes (Hospitalization)
  Sender: FDA-Public Use
  Company Number: None

PATIENT
  Age: 63 Year
  Sex: Male
  Weight: 74.8 kg

DRUGS (2)
  1. LENALIDOMIDE [Suspect]
     Active Substance: LENALIDOMIDE
     Dosage: DOSE PERMANENTLY DISCONTINUED 10/01/2014 DUE TO PE?
  2. RITUXIMAB (MOAB C2B8 ANTI CD20, CHIMERIC) [Suspect]
     Active Substance: RITUXIMAB
     Dosage: FOR STEP2, RITUXIMAB IN ADMINISTERED EVERY 8 WEEKS?

REACTIONS (11)
  - Night sweats [None]
  - Chest pain [None]
  - Influenza [None]
  - Dyspnoea [None]
  - Productive cough [None]
  - Pneumonia [None]
  - Deep vein thrombosis [None]
  - Chills [None]
  - Pulmonary embolism [None]
  - Fatigue [None]
  - Pulmonary infarction [None]

NARRATIVE: CASE EVENT DATE: 20141002
